FAERS Safety Report 23289282 (Version 1)
Quarter: 2023Q4

REPORT INFORMATION
  Report Type: Spontaneous
  Country: US (occurrence: US)
  Receive Date: 20231212
  Receipt Date: 20231212
  Transmission Date: 20240110
  Serious: Yes (Hospitalization)
  Sender: FDA-Public Use
  Company Number: US-TEVA-VS-3134812

PATIENT
  Age: 78 Year

DRUGS (2)
  1. METFORMIN [Suspect]
     Active Substance: METFORMIN HYDROCHLORIDE
     Indication: Prophylaxis
     Route: 065
  2. ALPELISIB [Suspect]
     Active Substance: ALPELISIB
     Indication: Breast cancer metastatic
     Route: 065

REACTIONS (4)
  - Hyperglycaemia [Recovered/Resolved]
  - Drug ineffective [Unknown]
  - Encephalopathy [Recovering/Resolving]
  - Diabetic ketoacidosis [Recovering/Resolving]
